FAERS Safety Report 24691737 (Version 2)
Quarter: 2024Q4

REPORT INFORMATION
  Report Type: Spontaneous
  Country: DE (occurrence: DE)
  Receive Date: 20241203
  Receipt Date: 20241220
  Transmission Date: 20250115
  Serious: Yes (Life-Threatening)
  Sender: VIIV
  Company Number: DE-ViiV Healthcare-DE2024EME151550

PATIENT

DRUGS (3)
  1. DOVATO [Suspect]
     Active Substance: DOLUTEGRAVIR SODIUM\LAMIVUDINE
     Indication: HIV infection
     Dosage: 1 DF, QD
     Dates: start: 20190809, end: 20201117
  2. HERBALS [Suspect]
     Active Substance: HERBALS
     Indication: Abdominal pain upper
     Dosage: UNK 20
     Dates: start: 20190809, end: 20201117
  3. MUPIROCIN [Suspect]
     Active Substance: MUPIROCIN
     Indication: Product used for unknown indication
     Dosage: UNK 2 X DAILY
     Dates: start: 20190809, end: 20201117

REACTIONS (2)
  - Depression [Recovered/Resolved]
  - Crying [Recovered/Resolved]
